FAERS Safety Report 17785943 (Version 3)
Quarter: 2020Q3

REPORT INFORMATION
  Report Type: Spontaneous
  Country: US (occurrence: US)
  Receive Date: 20200513
  Receipt Date: 20200817
  Transmission Date: 20201102
  Serious: No
  Sender: FDA-Public Use
  Company Number: US-ACTELION-A-NJ2020-205001

PATIENT
  Age: 64 Year
  Sex: Female

DRUGS (13)
  1. ALLEGRA?D [Concomitant]
     Active Substance: FEXOFENADINE\PSEUDOEPHEDRINE
     Dosage: UNK, PRN
  2. OMEPRAZOLE. [Concomitant]
     Active Substance: OMEPRAZOLE
  3. NABUMETONE. [Concomitant]
     Active Substance: NABUMETONE
  4. FORMOTEROL [Concomitant]
     Active Substance: FORMOTEROL
  5. VITAMIN D2 [Concomitant]
     Active Substance: ERGOCALCIFEROL
  6. MYCOPHENOLATE [Concomitant]
     Active Substance: MYCOPHENOLIC ACID
     Dosage: 500 MG
  7. NIFEDIPINE. [Concomitant]
     Active Substance: NIFEDIPINE
  8. BUDESONIDE. [Concomitant]
     Active Substance: BUDESONIDE
  9. DICLOFENAC [Concomitant]
     Active Substance: DICLOFENAC
  10. OPSUMIT [Suspect]
     Active Substance: MACITENTAN
     Indication: PULMONARY ARTERIAL HYPERTENSION
     Dosage: 10 MG, QD
     Route: 048
     Dates: start: 20200416
  11. PRAVASTATIN. [Concomitant]
     Active Substance: PRAVASTATIN
  12. METHOTREXATE. [Concomitant]
     Active Substance: METHOTREXATE
  13. FOLIC ACID. [Concomitant]
     Active Substance: FOLIC ACID

REACTIONS (1)
  - Joint swelling [Unknown]

NARRATIVE: CASE EVENT DATE: 202004
